FAERS Safety Report 5608073-5 (Version None)
Quarter: 2008Q1

REPORT INFORMATION
  Report Type: 
  Country: None (occurrence: None)
  Receive Date: 20080130
  Receipt Date: 20080117
  Transmission Date: 20080703
  Serious: Yes (Other)
  Sender: FDA-Public Use
  Company Number: FR-ASTRAZENECA-2007CG01703

PATIENT
  Age: 20094 Day
  Sex: Female

DRUGS (9)
  1. SYMBICORT [Suspect]
     Indication: ASTHMA
     Dosage: 320/9 UG PER DOSE, ONE INHALATION TWICE DAILY
     Route: 055
     Dates: end: 20070601
  2. SYMBICORT [Suspect]
     Dosage: 160/4.5 UG PER DOSE, ONE INHALATION TWICE DAILY
     Route: 055
     Dates: start: 20070601, end: 20071017
  3. SYMBICORT [Suspect]
     Dosage: 160/4.5 UG PER DOSE, ONE INHALATION TWICE DAILY
     Route: 055
     Dates: start: 20071018, end: 20071026
  4. SYMBICORT [Suspect]
     Dosage: 320/9 UG PER DOSE, ONE INHALATION TWICE DAILY
     Route: 055
     Dates: start: 20071027, end: 20071127
  5. SYMBICORT [Suspect]
     Dosage: 160/4.5 UG PER DOSE, ONE INHALATION TWICE DAILY
     Route: 055
     Dates: start: 20071128
  6. AERIUS [Concomitant]
  7. VASTAREL [Concomitant]
  8. ATARAX [Concomitant]
  9. LIPANOR [Concomitant]

REACTIONS (2)
  - ASTHMATIC CRISIS [None]
  - DEVICE INEFFECTIVE [None]
